FAERS Safety Report 24934508 (Version 1)
Quarter: 2025Q1

REPORT INFORMATION
  Report Type: Report from Study
  Country: US (occurrence: US)
  Receive Date: 20250206
  Receipt Date: 20250206
  Transmission Date: 20250409
  Serious: Yes (Hospitalization)
  Sender: EXELIXIS
  Company Number: US-EXELIXIS-CABO-24078824

PATIENT
  Sex: Male
  Weight: 95.583 kg

DRUGS (1)
  1. CABOMETYX [Suspect]
     Active Substance: CABOZANTINIB S-MALATE
     Indication: Hepatic cancer
     Dosage: 60 MG, QD
     Route: 048
     Dates: start: 20231129

REACTIONS (14)
  - Asthenia [Not Recovered/Not Resolved]
  - Dehydration [Unknown]
  - Hypophagia [Unknown]
  - Blood sodium decreased [Not Recovered/Not Resolved]
  - Soliloquy [Unknown]
  - Hallucination, visual [Unknown]
  - Confusional state [Unknown]
  - Dysphagia [Unknown]
  - Oral pain [Unknown]
  - Throat irritation [Unknown]
  - Loss of personal independence in daily activities [Unknown]
  - Haemorrhoids [Unknown]
  - Dry mouth [Unknown]
  - Cough [Unknown]
